FAERS Safety Report 23839203 (Version 1)
Quarter: 2024Q2

REPORT INFORMATION
  Report Type: Spontaneous
  Country: US (occurrence: US)
  Receive Date: 20240509
  Receipt Date: 20240509
  Transmission Date: 20240716
  Serious: No
  Sender: FDA-Public Use
  Company Number: US-AIMMUNE THERAPEUTICS, INC.-2024AIMT00183

PATIENT

DRUGS (14)
  1. VOWST [Suspect]
     Active Substance: DONOR HUMAN STOOL SPORES (ETHANOL TREATED)
     Indication: Clostridium difficile infection
     Dosage: UNK
     Route: 048
     Dates: start: 20240117, end: 20240119
  2. VOWST [Suspect]
     Active Substance: DONOR HUMAN STOOL SPORES (ETHANOL TREATED)
     Dosage: UNK, ONCE, LAST DOSE PRIOR EVENTS
     Route: 048
     Dates: start: 20240119, end: 20240119
  3. LIPITOR [Concomitant]
     Active Substance: ATORVASTATIN CALCIUM
     Indication: Product used for unknown indication
     Dosage: 40 MG
     Route: 048
  4. ELIQUIS [Concomitant]
     Active Substance: APIXABAN
     Indication: Product used for unknown indication
     Dosage: 2.5 MG
     Route: 048
  5. SOTALOL [Concomitant]
     Active Substance: SOTALOL
     Indication: Product used for unknown indication
     Dosage: 80 MG
     Route: 048
  6. BENZONATATE [Concomitant]
     Active Substance: BENZONATATE
     Indication: Product used for unknown indication
     Dosage: 100 MG
     Route: 048
  7. ROBITUSSIN SEVERE [Concomitant]
     Active Substance: ACETAMINOPHEN\DEXTROMETHORPHAN HYDROBROMIDE\DOXYLAMINE SUCCINATE
     Indication: Product used for unknown indication
     Dosage: 12.5-5-325 MG/10 ML
     Route: 048
  8. PROBIOTICS NOS [Concomitant]
     Active Substance: PROBIOTICS NOS
     Indication: Product used for unknown indication
     Route: 048
  9. VITAMIN D3 VITAMIN K1 [Concomitant]
     Indication: Product used for unknown indication
  10. ALLEGRA ALLERGY [Concomitant]
     Active Substance: FEXOFENADINE HYDROCHLORIDE
     Indication: Product used for unknown indication
     Dosage: 1 SPRAY IN EACH NOSTRIL, TWICE PER DAY
  11. FLUTICASONE [Concomitant]
     Active Substance: FLUTICASONE
     Indication: Product used for unknown indication
     Dosage: 2 SPRAYS IN EACH NOSTRIL, ONCE PER DAY
  12. BREO ELLIPTA [Concomitant]
     Active Substance: FLUTICASONE FUROATE\VILANTEROL TRIFENATATE
     Indication: Product used for unknown indication
     Dosage: ONCE PER DAY
  13. DIFICID [Concomitant]
     Active Substance: FIDAXOMICIN
     Indication: Product used for unknown indication
     Dosage: 200 MG, 2X/DAY, 10 DAYS
     Route: 048
  14. VANCOCIN [Concomitant]
     Active Substance: VANCOMYCIN HYDROCHLORIDE
     Indication: Product used for unknown indication
     Dosage: 125 MG, 4X/DAY, 14D
     Route: 048

REACTIONS (3)
  - Gastrointestinal sounds abnormal [Recovered/Resolved]
  - Faeces soft [Unknown]
  - Flatulence [Unknown]

NARRATIVE: CASE EVENT DATE: 20240125
